FAERS Safety Report 8220501-8 (Version None)
Quarter: 2012Q1

REPORT INFORMATION
  Report Type: 
  Country: None (occurrence: None)
  Receive Date: 20120320
  Receipt Date: 20120309
  Transmission Date: 20120608
  Serious: Yes (Death, Other)
  Sender: FDA-Public Use
  Company Number: JP-AMGEN-JPNCT2011043887

PATIENT
  Age: 74 Year
  Sex: Female
  Weight: 54 kg

DRUGS (12)
  1. PANITUMUMAB [Suspect]
     Indication: COLORECTAL CANCER
     Dosage: 5.6 MG/KG, Q2WK
     Route: 041
     Dates: start: 20101027, end: 20101027
  2. ANTIHISTAMINES [Concomitant]
     Indication: PROPHYLAXIS
     Route: 065
  3. FLUOROURACIL [Concomitant]
     Route: 041
     Dates: start: 20101027, end: 20101223
  4. PANITUMUMAB [Suspect]
     Dosage: 5.6 MG/KG, Q2WK
     Route: 041
     Dates: start: 20101222, end: 20101222
  5. LEUCOVORIN CALCIUM [Concomitant]
     Indication: COLORECTAL CANCER
     Route: 041
     Dates: start: 20101027, end: 20101223
  6. NOZLEN [Concomitant]
     Dosage: UNK
     Route: 049
  7. CORTICOSTEROIDS [Concomitant]
     Indication: PROPHYLAXIS
     Dosage: UNK
     Route: 065
  8. LOCOID [Concomitant]
     Dosage: UNK
     Route: 062
  9. IRINOTECAN HCL [Concomitant]
     Indication: COLORECTAL CANCER
     Route: 041
     Dates: start: 20101027, end: 20101223
  10. FLUOROURACIL [Concomitant]
     Indication: COLORECTAL CANCER
     Dosage: 550 MG, Q2WK
     Route: 040
     Dates: start: 20101027, end: 20101223
  11. MINOCYCLINE HCL [Concomitant]
     Route: 048
  12. PANITUMUMAB [Suspect]
     Dosage: 5.6 MG/KG, Q2WK
     Route: 041
     Dates: start: 20101122, end: 20101122

REACTIONS (3)
  - DEATH [None]
  - DYSPNOEA [None]
  - DERMATITIS ALLERGIC [None]
